FAERS Safety Report 13724706 (Version 1)
Quarter: 2017Q3

REPORT INFORMATION
  Report Type: Spontaneous
  Country: US (occurrence: US)
  Receive Date: 20170706
  Receipt Date: 20170706
  Transmission Date: 20171127
  Serious: No
  Sender: FDA-Public Use
  Company Number: US-MEDA-2017060053

PATIENT
  Age: 80 Year
  Sex: Male

DRUGS (1)
  1. MUSE [Suspect]
     Active Substance: ALPROSTADIL
     Route: 066
     Dates: start: 201706

REACTIONS (3)
  - Drug ineffective [Unknown]
  - Prescription drug used without a prescription [Unknown]
  - Penile burning sensation [Unknown]

NARRATIVE: CASE EVENT DATE: 201706
